FAERS Safety Report 16253218 (Version 3)
Quarter: 2021Q3

REPORT INFORMATION
  Report Type: Spontaneous
  Country: US (occurrence: US)
  Receive Date: 20190429
  Receipt Date: 20210728
  Transmission Date: 20211014
  Serious: Yes (Other)
  Sender: FDA-Public Use
  Company Number: US-SA-2019SA115653

PATIENT
  Sex: Male

DRUGS (1)
  1. AUBAGIO [Suspect]
     Active Substance: TERIFLUNOMIDE
     Indication: MULTIPLE SCLEROSIS
     Dosage: 14 MG, QD
     Route: 048
     Dates: start: 20180621

REACTIONS (8)
  - Blood glucose increased [Unknown]
  - Constipation [Unknown]
  - Headache [Unknown]
  - Multiple sclerosis relapse [Unknown]
  - Palpitations [Unknown]
  - Hypertension [Unknown]
  - Multiple sclerosis [Unknown]
  - Diarrhoea [Unknown]

NARRATIVE: CASE EVENT DATE: 202106
